FAERS Safety Report 7149526-0 (Version None)
Quarter: 2010Q4

REPORT INFORMATION
  Report Type: 
  Country: None (occurrence: None)
  Receive Date: 20101209
  Receipt Date: 20101130
  Transmission Date: 20110411
  Serious: Yes (Hospitalization)
  Sender: FDA-Public Use
  Company Number: US-WATSON-2010-13892

PATIENT
  Sex: Male
  Weight: 74.83 kg

DRUGS (5)
  1. FENTANYL-25 [Suspect]
     Indication: NEURALGIA
     Dosage: 1 PATCH Q 72 HOURS (MAY HAVE STARTED 3 MONTHS AGO IN AUG 2010)
     Route: 062
     Dates: start: 20100929
  2. FENTANYL-25 [Suspect]
     Indication: FIBROMYALGIA
  3. FENTANYL-50 [Suspect]
     Indication: FIBROMYALGIA
     Dosage: 1 PATCH Q 72 HOURS
     Route: 062
     Dates: start: 20101001, end: 20101130
  4. FENTANYL-50 [Suspect]
     Indication: NEUROPATHY PERIPHERAL
  5. ZOLPIDEM [Suspect]
     Indication: INSOMNIA
     Dosage: 10 MG, QHS (ON/OFF X 1 YEAR)
     Route: 048
     Dates: start: 20090101

REACTIONS (11)
  - BLOOD PRESSURE INCREASED [None]
  - COLD SWEAT [None]
  - HALLUCINATION [None]
  - HYPERHIDROSIS [None]
  - HYPOAESTHESIA [None]
  - NAUSEA [None]
  - NERVOUSNESS [None]
  - NIGHT SWEATS [None]
  - NIGHTMARE [None]
  - PNEUMONIA [None]
  - RASH [None]
